FAERS Safety Report 9376180 (Version 3)
Quarter: 2013Q3

REPORT INFORMATION
  Report Type: Spontaneous
  Country: JP (occurrence: JP)
  Receive Date: 20130630
  Receipt Date: 20130712
  Transmission Date: 20140515
  Serious: Yes (Life-Threatening, Other)
  Sender: FDA-Public Use
  Company Number: JP-ROCHE-1241681

PATIENT
  Age: 54 Year
  Sex: Male
  Weight: 60 kg

DRUGS (2)
  1. ROCEPHIN [Suspect]
     Indication: ENDOCARDITIS
     Route: 041
     Dates: start: 20121020, end: 20121029
  2. VANCOMYCIN [Concomitant]
     Indication: ENDOCARDITIS
     Route: 041
     Dates: start: 20121020, end: 20121024

REACTIONS (2)
  - Altered state of consciousness [Recovered/Resolved]
  - Overdose [Unknown]
